FAERS Safety Report 6539010-7 (Version None)
Quarter: 2010Q1

REPORT INFORMATION
  Report Type: 
  Country: None (occurrence: None)
  Receive Date: 20100107
  Receipt Date: 20090908
  Transmission Date: 20100710
  Serious: Yes (Hospitalization, Other)
  Sender: FDA-Public Use
  Company Number: AUR-APL-2009-00689

PATIENT
  Age: 13 Year
  Sex: Male

DRUGS (2)
  1. AMOXICILLIN [Suspect]
     Indication: PHARYNGITIS STREPTOCOCCAL
     Dosage: 500MG - ORAL
     Route: 048
     Dates: start: 20070917
  2. DILANTIN [Suspect]
     Indication: CONVULSION
     Dosage: QHS ORAL
     Route: 048
     Dates: start: 20070902

REACTIONS (1)
  - STEVENS-JOHNSON SYNDROME [None]
